FAERS Safety Report 16782201 (Version 3)
Quarter: 2019Q4

REPORT INFORMATION
  Report Type: Spontaneous
  Country: US (occurrence: US)
  Receive Date: 20190906
  Receipt Date: 20191119
  Transmission Date: 20200122
  Serious: No
  Sender: FDA-Public Use
  Company Number: US-JNJFOC-20190839184

PATIENT
  Age: 70 Year
  Sex: Female
  Weight: 66.74 kg

DRUGS (5)
  1. DARZALEX [Suspect]
     Active Substance: DARATUMUMAB
     Indication: PLASMA CELL MYELOMA
     Route: 042
     Dates: start: 20190709
  2. METOPROLOL. [Concomitant]
     Active Substance: METOPROLOL
     Indication: BLOOD PRESSURE MEASUREMENT
     Route: 048
  3. ATIVAN [Concomitant]
     Active Substance: LORAZEPAM
     Indication: BLOOD CHOLESTEROL
     Route: 048
     Dates: start: 2011
  4. PROLIA [Concomitant]
     Active Substance: DENOSUMAB
     Indication: OSTEOPOROSIS
     Route: 065
     Dates: start: 20191010
  5. HYDROCODONE [Concomitant]
     Active Substance: HYDROCODONE
     Indication: NEUROPATHY PERIPHERAL
     Dosage: 325MG/5MG
     Route: 048
     Dates: start: 2016

REACTIONS (13)
  - Decreased appetite [Unknown]
  - Angiopathy [Not Recovered/Not Resolved]
  - Mass [Not Recovered/Not Resolved]
  - Oral pain [Unknown]
  - Haematoma [Not Recovered/Not Resolved]
  - Asthenia [Unknown]
  - Eye disorder [Unknown]
  - Product packaging quantity issue [Unknown]
  - Nausea [Unknown]
  - Dyspnoea [Not Recovered/Not Resolved]
  - Insomnia [Unknown]
  - Diarrhoea [Unknown]
  - Body dysmorphic disorder [Not Recovered/Not Resolved]

NARRATIVE: CASE EVENT DATE: 2019
